FAERS Safety Report 7205563-9 (Version None)
Quarter: 2010Q4

REPORT INFORMATION
  Report Type: 
  Country: None (occurrence: None)
  Receive Date: 20101231
  Receipt Date: 20101227
  Transmission Date: 20110411
  Serious: Yes (Other)
  Sender: FDA-Public Use
  Company Number: JP-BRISTOL-MYERS SQUIBB COMPANY-15359821

PATIENT
  Age: 39 Year
  Sex: Female

DRUGS (1)
  1. ABILIFY [Suspect]
     Indication: SCHIZOPHRENIA
     Dosage: 12MG:2009-6OT10,9MG:7-20OT10TD:14DY,6MG:21OT-10NOVTD:21DY,3MG:11NOV10-ONG,12MG:22JAN-6OCT10TD:258DY
     Route: 048
     Dates: start: 20090101

REACTIONS (3)
  - ABORTION [None]
  - DRUG EXPOSURE DURING PREGNANCY [None]
  - PREGNANCY [None]
